FAERS Safety Report 8796296 (Version 1)
Quarter: 2012Q4

REPORT INFORMATION
  Report Type: 
  Country: FI (occurrence: FI)
  Receive Date: 20120919
  Receipt Date: 20120919
  Transmission Date: 20130627
  Serious: Yes (Other)
  Sender: FDA-Public Use
  Company Number: FI-PFIZER INC-2012227932

PATIENT
  Age: 30 Year
  Sex: Male

DRUGS (4)
  1. EFEXOR [Suspect]
     Indication: ANXIETY DISORDER
     Dosage: 300 mg, in the mornings
  2. EFEXOR [Suspect]
     Dosage: 225 mg, in the mornings
  3. EFEXOR [Suspect]
     Dosage: 150 mg, in the mornings
  4. EFEXOR [Suspect]
     Dosage: 225 mg, daily

REACTIONS (4)
  - Withdrawal syndrome [Unknown]
  - Dizziness [Unknown]
  - Hyperhidrosis [Unknown]
  - Panic attack [Unknown]
